FAERS Safety Report 9820350 (Version 1)
Quarter: 2013Q4

REPORT INFORMATION
  Report Type: Spontaneous
  Country: US (occurrence: None)
  Receive Date: 20131223
  Receipt Date: 20131223
  Transmission Date: 20140711
  Serious: No
  Sender: FDA-Public Use
  Company Number: 217719

PATIENT
  Age: 56 Year
  Sex: Female

DRUGS (1)
  1. PICATO [Suspect]
     Indication: PRODUCT USED FOR UNKNOWN INDICATION
     Dosage: 0.47 G, 1 TUBE ONCE A DAY FOR 3 DAYS
     Route: 061
     Dates: start: 20120515, end: 20120516

REACTIONS (5)
  - Application site erythema [None]
  - Application site pain [None]
  - Application site swelling [None]
  - Drug administered at inappropriate site [None]
  - Incorrect product storage [None]
